FAERS Safety Report 7006563-4 (Version None)
Quarter: 2010Q3

REPORT INFORMATION
  Report Type: 
  Country: None (occurrence: None)
  Receive Date: 20100921
  Receipt Date: 20090629
  Transmission Date: 20110219
  Serious: No
  Sender: FDA-Public Use
  Company Number: US-WYE-H09316609

PATIENT
  Sex: Male

DRUGS (1)
  1. BENEFIX [Suspect]
     Dosage: UNKNOWN

REACTIONS (2)
  - DEVICE MALFUNCTION [None]
  - INFUSION SITE EXTRAVASATION [None]
